FAERS Safety Report 5443096-0 (Version None)
Quarter: 2007Q3

REPORT INFORMATION
  Report Type: 
  Country: None (occurrence: None)
  Receive Date: 20070905
  Receipt Date: 20070823
  Transmission Date: 20080115
  Serious: Yes (Other)
  Sender: FDA-Public Use
  Company Number: US-AMGEN-US240109

PATIENT
  Sex: Female

DRUGS (7)
  1. SENSIPAR [Suspect]
     Indication: PARATHYROID TUMOUR MALIGNANT
     Route: 065
     Dates: start: 20070201, end: 20070701
  2. ZOCOR [Concomitant]
     Route: 048
  3. FOSAMAX [Concomitant]
     Route: 048
  4. MAXZIDE [Concomitant]
     Route: 048
  5. ASPIRIN [Concomitant]
     Route: 048
  6. PRED FORTE [Concomitant]
     Route: 065
  7. MICARDIS [Concomitant]
     Route: 048

REACTIONS (3)
  - ANGIOEDEMA [None]
  - LIP OEDEMA [None]
  - PARAESTHESIA [None]
